FAERS Safety Report 16985917 (Version 1)
Quarter: 2019Q4

REPORT INFORMATION
  Report Type: Spontaneous
  Country: US (occurrence: US)
  Receive Date: 20191031
  Receipt Date: 20191031
  Transmission Date: 20200122
  Serious: Yes (Other)
  Sender: FDA-Public Use
  Company Number: None

PATIENT
  Age: 55 Year
  Sex: Male

DRUGS (1)
  1. COSENTYX [Suspect]
     Active Substance: SECUKINUMAB
     Dosage: 300 MG SUBCUTANEOUS EVERY 28 DAYS
     Route: 058
     Dates: start: 20180125

REACTIONS (1)
  - Complex regional pain syndrome [None]

NARRATIVE: CASE EVENT DATE: 20191030
